FAERS Safety Report 19804628 (Version 1)
Quarter: 2021Q3

REPORT INFORMATION
  Report Type: Report from Study
  Country: CA (occurrence: CA)
  Receive Date: 20210908
  Receipt Date: 20210908
  Transmission Date: 20211014
  Serious: Yes (Other)
  Sender: FDA-Public Use
  Company Number: CA-TAKEDA-2021TUS054641

PATIENT
  Age: 63 Year
  Sex: Male

DRUGS (3)
  1. CORTIMENT [Concomitant]
     Dosage: 9 MILLIGRAM
     Dates: start: 202003
  2. VEDOLIZUMAB [Suspect]
     Active Substance: VEDOLIZUMAB
     Indication: CROHN^S DISEASE
     Dosage: 300 MILLIGRAM
     Route: 042
     Dates: start: 20200622
  3. MEZERA [Concomitant]
     Active Substance: MESALAMINE
     Dosage: UNK
     Route: 054

REACTIONS (3)
  - Myalgia [Unknown]
  - Thrombosis [Unknown]
  - Arthralgia [Unknown]
